FAERS Safety Report 10714585 (Version 1)
Quarter: 2015Q1

REPORT INFORMATION
  Report Type: Report from Study
  Country: ES (occurrence: ES)
  Receive Date: 20150115
  Receipt Date: 20150115
  Transmission Date: 20150721
  Serious: Yes (Hospitalization)
  Sender: FDA-Public Use
  Company Number: ES-TEVA-533953ISR

PATIENT
  Age: 59 Year
  Sex: Female
  Weight: 86 kg

DRUGS (4)
  1. PACLITAXEL. [Suspect]
     Active Substance: PACLITAXEL
     Indication: BREAST CANCER
     Dosage: CYCLE 3 DAY 17.LAST DOSE PRIOR TO EVENT:31-DEC-2014
     Route: 042
     Dates: start: 20141106
  2. TRASTUZUMAB [Suspect]
     Active Substance: TRASTUZUMAB
     Indication: BREAST CANCER
     Dosage: CYCLE 3 DAY 17.LAST DOSE PRIOR TO EVENT:31-DEC-2014
     Route: 042
     Dates: start: 20141106
  3. PERTUZUMAB [Suspect]
     Active Substance: PERTUZUMAB
     Indication: BREAST CANCER
     Dosage: CYCLE 3 DAY 17.LAST DOSE PRIOR TO EVENT:24-DEC-2014
     Route: 042
     Dates: start: 20141106
  4. MYOCET [Suspect]
     Active Substance: DOXORUBICIN
     Indication: BREAST CANCER
     Dosage: CYCLE 3 DAY 17.LAST DOSE PRIOR TO EVENT:24-DEC-2014
     Route: 042
     Dates: start: 20141106

REACTIONS (1)
  - Gastrointestinal toxicity [Not Recovered/Not Resolved]

NARRATIVE: CASE EVENT DATE: 20150107
